FAERS Safety Report 6403573-2 (Version None)
Quarter: 2009Q4

REPORT INFORMATION
  Report Type: 
  Country: None (occurrence: None)
  Receive Date: 20091016
  Receipt Date: 20091009
  Transmission Date: 20100525
  Serious: Yes (Other)
  Sender: FDA-Public Use
  Company Number: US-JNJFOC-20091000161

PATIENT
  Age: 2 Year
  Sex: Male
  Weight: 15.42 kg

DRUGS (3)
  1. CHILDREN'S TYLENOL LIQUID DYE-FREE CHERRY [Suspect]
     Route: 048
  2. CHILDREN'S TYLENOL LIQUID DYE-FREE CHERRY [Suspect]
     Indication: IMMUNISATION
     Dosage: 160MG EVERY 6-8 HOURS
     Route: 048
  3. TRIAMCINOLONE [Concomitant]
     Indication: ECZEMA

REACTIONS (3)
  - DYSPNOEA EXERTIONAL [None]
  - LETHARGY [None]
  - TRANSMISSION OF AN INFECTIOUS AGENT VIA A MEDICINAL PRODUCT [None]
